FAERS Safety Report 5258960-5 (Version None)
Quarter: 2007Q1

REPORT INFORMATION
  Report Type: 
  Country: None (occurrence: None)
  Receive Date: 20070308
  Receipt Date: 20070226
  Transmission Date: 20070707
  Serious: Yes (Other)
  Sender: FDA-Public Use
  Company Number: JP-ROCHE-484441

PATIENT
  Age: 36 Year
  Sex: Male

DRUGS (5)
  1. TAMIFLU [Suspect]
     Indication: INFLUENZA
     Route: 048
     Dates: start: 20070215, end: 20070217
  2. CLARITHROMYCIN [Concomitant]
     Route: 048
     Dates: start: 20070215
  3. PAXIL [Concomitant]
     Dosage: THE PATIENT DID NOT TAKE PAXIL ON 15./16. AND 17TH FEBRUARY 2007.
     Route: 048
  4. UNSPECIFIED DRUG [Concomitant]
     Dosage: DRUG REPORTED AS HERBAL MEDICINE. 3-DAY DOSE AS NEEDED WAS PRESCRIBED.
     Dates: start: 20070214, end: 20070217
  5. MUCOSOLVAN [Concomitant]
     Dosage: AT DINNER

REACTIONS (4)
  - HALLUCINATION [None]
  - NIGHTMARE [None]
  - SLEEP DISORDER [None]
  - SUICIDAL IDEATION [None]
